FAERS Safety Report 6877583-5 (Version None)
Quarter: 2010Q3

REPORT INFORMATION
  Report Type: 
  Country: None (occurrence: None)
  Receive Date: 20100727
  Receipt Date: 20100412
  Transmission Date: 20110219
  Serious: No
  Sender: FDA-Public Use
  Company Number: US-ABBOTT-10P-163-0630286-00

PATIENT
  Sex: Female
  Weight: 84.898 kg

DRUGS (3)
  1. SYNTHROID [Suspect]
     Indication: AUTOIMMUNE THYROIDITIS
     Route: 048
     Dates: start: 19950101, end: 20080101
  2. SYNTHROID [Suspect]
     Dosage: 1 MONTH AGO 112
     Route: 048
     Dates: start: 20090701
  3. LISINOPRIL [Suspect]
     Indication: HYPERTENSION
     Dosage: DOSE UNKNOWN
     Dates: start: 20070101, end: 20070101

REACTIONS (22)
  - ACNE [None]
  - ANXIETY [None]
  - BLOOD CHOLESTEROL INCREASED [None]
  - DEPRESSION [None]
  - DISTURBANCE IN ATTENTION [None]
  - DYSPHAGIA [None]
  - DYSPNOEA [None]
  - FATIGUE [None]
  - FEELING HOT [None]
  - GOITRE [None]
  - HYPERTENSION [None]
  - INSOMNIA [None]
  - MEMORY IMPAIRMENT [None]
  - MOOD SWINGS [None]
  - OEDEMA PERIPHERAL [None]
  - OROPHARYNGEAL PAIN [None]
  - PALPITATIONS [None]
  - PERIPHERAL COLDNESS [None]
  - SINUS DISORDER [None]
  - SINUS HEADACHE [None]
  - VISION BLURRED [None]
  - WEIGHT INCREASED [None]
